FAERS Safety Report 8508857-X (Version None)
Quarter: 2012Q3

REPORT INFORMATION
  Report Type: 
  Country: None (occurrence: None)
  Receive Date: 20120713
  Receipt Date: 20120711
  Transmission Date: 20120928
  Serious: Yes (Other)
  Sender: FDA-Public Use
  Company Number: PHHY2012NZ059442

PATIENT
  Sex: Female

DRUGS (1)
  1. ZOLEDRONOC ACID [Suspect]
     Dosage: UNK
     Route: 042

REACTIONS (4)
  - AMNESIA [None]
  - NAUSEA [None]
  - PAIN IN JAW [None]
  - INFLUENZA LIKE ILLNESS [None]
